FAERS Safety Report 21754590 (Version 1)
Quarter: 2022Q4

REPORT INFORMATION
  Report Type: Spontaneous
  Country: JP (occurrence: JP)
  Receive Date: 20221220
  Receipt Date: 20221220
  Transmission Date: 20230112
  Serious: Yes (Other)
  Sender: FDA-Public Use
  Company Number: JP-VIATRISJAPAN-2022M1138969AA

PATIENT
  Age: 88 Year

DRUGS (2)
  1. EPLERENONE [Suspect]
     Active Substance: EPLERENONE
     Indication: Hypertension
     Dosage: 50 MILLIGRAM(TWO 25MG TABLETS), IN THE COLD.
     Route: 048
  2. EPLERENONE [Suspect]
     Active Substance: EPLERENONE
     Dosage: 25 MILLIGRAM
     Route: 048

REACTIONS (3)
  - Atrial fibrillation [Unknown]
  - Arrhythmia [Unknown]
  - Inappropriate schedule of product administration [Unknown]
